FAERS Safety Report 8604516-3 (Version None)
Quarter: 2012Q3

REPORT INFORMATION
  Report Type: 
  Country: None (occurrence: None)
  Receive Date: 20120820
  Receipt Date: 20120817
  Transmission Date: 20120928
  Serious: Yes (Hospitalization)
  Sender: FDA-Public Use
  Company Number: CZ-BAYER-2012-061790

PATIENT
  Age: 80 Year
  Sex: Female
  Weight: 58 kg

DRUGS (2)
  1. NEXAVAR [Suspect]
     Indication: HEPATIC NEOPLASM MALIGNANT
     Dosage: 800 MG DAILY
     Route: 048
     Dates: start: 20100420, end: 20100602
  2. ENALAPRIL MALEATE [Concomitant]
     Indication: HYPERTENSION
     Dosage: DAILY DOSE: 10 MG
     Route: 048
     Dates: start: 20080101, end: 20100724

REACTIONS (1)
  - MALNUTRITION [None]
